FAERS Safety Report 22144966 (Version 1)
Quarter: 2023Q1

REPORT INFORMATION
  Report Type: Spontaneous
  Country: US (occurrence: None)
  Receive Date: 20230328
  Receipt Date: 20230328
  Transmission Date: 20230417
  Serious: Yes (Death, Hospitalization)
  Sender: FDA-Public Use
  Company Number: US-MDD US Operations-MDD202303-001124

PATIENT
  Age: 77 Year

DRUGS (15)
  1. APOKYN [Suspect]
     Active Substance: APOMORPHINE HYDROCHLORIDE
     Indication: Parkinson^s disease
     Dosage: 0.12 ML
     Route: 058
  2. ASPIRIN [Concomitant]
     Active Substance: ASPIRIN
     Dosage: NOT PROVIDED
  3. Atorvastsatin [Concomitant]
  4. LEVODOPA [Concomitant]
     Active Substance: LEVODOPA
  5. VitaminB12 [Concomitant]
     Dosage: 1000MG/ML
  6. DICLOFENAC [Concomitant]
     Active Substance: DICLOFENAC
     Dosage: 1%
     Route: 061
  7. FERROUS SULFATE [Concomitant]
     Active Substance: FERROUS SULFATE
  8. FLUTICASONE [Concomitant]
     Active Substance: FLUTICASONE
  9. FUROSEMIDE [Concomitant]
     Active Substance: FUROSEMIDE
  10. LIDOCAINE [Concomitant]
     Active Substance: LIDOCAINE
     Dosage: 5%
     Route: 061
  11. LOSARTAN [Concomitant]
     Active Substance: LOSARTAN
  12. MAGNESIUM OXIDE [Concomitant]
     Active Substance: MAGNESIUM OXIDE
  13. TYLENOL [Concomitant]
     Active Substance: ACETAMINOPHEN
     Route: 048
  14. VITAMIN C [Concomitant]
     Active Substance: ASCORBIC ACID
     Dosage: NOT PROVIDED
  15. Norion [Concomitant]

REACTIONS (2)
  - Death [Fatal]
  - Cardiac failure [Unknown]

NARRATIVE: CASE EVENT DATE: 20230315
